FAERS Safety Report 5483321-3 (Version None)
Quarter: 2007Q4

REPORT INFORMATION
  Report Type: 
  Country: None (occurrence: None)
  Receive Date: 20071012
  Receipt Date: 20071009
  Transmission Date: 20080405
  Serious: Yes (Death, Hospitalization)
  Sender: FDA-Public Use
  Company Number: PHBS2007GT16747

PATIENT
  Age: 65 Year
  Sex: Male

DRUGS (1)
  1. GLEEVEC [Suspect]
     Indication: CHRONIC MYELOID LEUKAEMIA
     Dosage: 400 MG/D
     Route: 048
     Dates: start: 20030101, end: 20070901

REACTIONS (5)
  - ACUTE MYOCARDIAL INFARCTION [None]
  - ACUTE RESPIRATORY DISTRESS SYNDROME [None]
  - DIABETES MELLITUS [None]
  - GASTROINTESTINAL HAEMORRHAGE [None]
  - INTUBATION [None]
